FAERS Safety Report 16228923 (Version 1)
Quarter: 2019Q2

REPORT INFORMATION
  Report Type: Spontaneous
  Country: US (occurrence: US)
  Receive Date: 20190423
  Receipt Date: 20190423
  Transmission Date: 20190711
  Serious: Yes (Other)
  Sender: FDA-Public Use
  Company Number: US-PFIZER INC-2019167305

PATIENT
  Age: 59 Year
  Sex: Male
  Weight: 94.8 kg

DRUGS (1)
  1. RAPAMUNE [Suspect]
     Active Substance: SIROLIMUS
     Indication: LIVER TRANSPLANT
     Dosage: 3 MG, 1X/DAY

REACTIONS (3)
  - Product use in unapproved indication [Unknown]
  - Neoplasm malignant [Unknown]
  - Hepatic mass [Unknown]
